FAERS Safety Report 20045740 (Version 1)
Quarter: 2021Q4

REPORT INFORMATION
  Report Type: Spontaneous
  Country: CN (occurrence: CN)
  Receive Date: 20211108
  Receipt Date: 20211108
  Transmission Date: 20220303
  Serious: Yes (Life-Threatening)
  Sender: FDA-Public Use
  Company Number: CN-BAXTER-2021BAX034744

PATIENT
  Age: 45 Year
  Sex: Female
  Weight: 45 kg

DRUGS (2)
  1. MANNITOL [Suspect]
     Active Substance: MANNITOL
     Indication: Swelling
     Route: 041
     Dates: start: 20211020, end: 20211020
  2. MANNITOL [Suspect]
     Active Substance: MANNITOL
     Indication: Diuretic therapy

REACTIONS (1)
  - Anaphylactic shock [Recovered/Resolved]

NARRATIVE: CASE EVENT DATE: 20211020
